FAERS Safety Report 9173430 (Version 1)
Quarter: 2013Q1

REPORT INFORMATION
  Report Type: Spontaneous
  Country: GB (occurrence: None)
  Receive Date: 20130315
  Receipt Date: 20130315
  Transmission Date: 20140127
  Serious: Yes (Congenital Anomaly, Other)
  Sender: FDA-Public Use
  Company Number: 2013-04290

PATIENT
  Sex: Male

DRUGS (6)
  1. DIAZEPAM [Suspect]
  2. HALOPERIDOL LACTATE [Suspect]
  3. DROLEPTAN [Suspect]
  4. DEPIXOL [Suspect]
  5. VALIUM [Suspect]
  6. SPARINE [Suspect]

REACTIONS (3)
  - Blindness congenital [None]
  - Learning disorder [None]
  - Maternal exposure before pregnancy [None]
